FAERS Safety Report 25038299 (Version 1)
Quarter: 2025Q1

REPORT INFORMATION
  Report Type: Spontaneous
  Country: JP (occurrence: JP)
  Receive Date: 20250304
  Receipt Date: 20250304
  Transmission Date: 20250409
  Serious: Yes (Hospitalization, Other)
  Sender: MERCK SHARP & DOHME LLC
  Company Number: JP-MSD-M2025-02443

PATIENT
  Age: 69 Year
  Sex: Male

DRUGS (3)
  1. KEYTRUDA [Suspect]
     Active Substance: PEMBROLIZUMAB
     Indication: Squamous cell carcinoma of lung
     Dosage: DOSE DESCRIPTION : 200 MILLIGRAM, Q3W?DAILY DOSE : 9.4 MILLIGRAM?REGIMEN DOSE : 200  MILLIGRAM
     Route: 041
     Dates: start: 202307, end: 20240522
  2. CARBOPLATIN [Concomitant]
     Active Substance: CARBOPLATIN
     Indication: Non-small cell lung cancer
     Dosage: DOSE DESCRIPTION : UNK?DOSAGE: AU6
     Route: 065
     Dates: start: 202307, end: 202310
  3. PACLITAXEL [Concomitant]
     Active Substance: PACLITAXEL
     Indication: Non-small cell lung cancer
     Dosage: DOSE DESCRIPTION : UNK
     Route: 041
     Dates: start: 202307, end: 202310

REACTIONS (5)
  - Gastrointestinal perforation [Unknown]
  - Immune-mediated dermatitis [Recovered/Resolved]
  - Hypoaesthesia [Unknown]
  - Depression [Unknown]
  - Disease recurrence [Unknown]
